FAERS Safety Report 14212455 (Version 1)
Quarter: 2017Q4

REPORT INFORMATION
  Report Type: Report from Study
  Country: IE (occurrence: IE)
  Receive Date: 20171121
  Receipt Date: 20171121
  Transmission Date: 20180321
  Serious: Yes (Other)
  Sender: FDA-Public Use
  Company Number: IE-AMGEN-IRLSL2017173659

PATIENT
  Age: 63 Year
  Sex: Male

DRUGS (16)
  1. PREGABALIN. [Concomitant]
     Active Substance: PREGABALIN
     Dosage: 25 MG, BID
     Route: 050
  2. BISOP [Concomitant]
     Dosage: 1.25 MG, QD
     Route: 050
  3. THIAMINE. [Concomitant]
     Active Substance: THIAMINE
     Dosage: 100 MG, TID
     Route: 050
  4. METHADONE [Concomitant]
     Active Substance: METHADONE HYDROCHLORIDE
     Dosage: 2 ML, BID
     Route: 050
  5. FRUSEMIDE [Concomitant]
     Active Substance: FUROSEMIDE
     Dosage: 40 MG, QD
     Route: 050
  6. GERMENTIN [Concomitant]
     Dosage: 625 MG, TID
     Route: 050
  7. MELFEN [Concomitant]
     Dosage: 400 MG, AS NECESSARY
     Route: 050
  8. MAXOLON [Concomitant]
     Active Substance: METOCLOPRAMIDE HYDROCHLORIDE
     Dosage: 10 MG, AS NECESSARY
     Route: 050
  9. VALACICLOVIR [Concomitant]
     Active Substance: VALACYCLOVIR HYDROCHLORIDE
     Dosage: 500 MG, QD
     Route: 050
  10. NEULASTA [Suspect]
     Active Substance: PEGFILGRASTIM
     Indication: PRODUCT USED FOR UNKNOWN INDICATION
     Dosage: 6 MG, AFTER CHEMO (3 WEEKLY CYCLE)
     Route: 058
  11. OMEPRAZOLE. [Concomitant]
     Active Substance: OMEPRAZOLE
     Dosage: 20 MG, ONCE DAILY
     Route: 050
  12. ORAMORPH [Concomitant]
     Active Substance: MORPHINE SULFATE
     Dosage: 1.25 ML, QID
     Route: 050
  13. FOLIC ACID. [Concomitant]
     Active Substance: FOLIC ACID
     Dosage: 0.4 MG, QD
     Route: 050
  14. ALLOPURINOL. [Concomitant]
     Active Substance: ALLOPURINOL
     Dosage: 100 MG, QD
     Route: 050
  15. RAMIPRIL. [Concomitant]
     Active Substance: RAMIPRIL
     Dosage: 1.25 MG, QD
     Route: 050
  16. MATRIFEN [Concomitant]
     Active Substance: FENTANYL
     Dosage: 25 MUG, 3 TIMES/WK
     Route: 050

REACTIONS (3)
  - Haematochezia [Not Recovered/Not Resolved]
  - Fatigue [Not Recovered/Not Resolved]
  - Nausea [Not Recovered/Not Resolved]

NARRATIVE: CASE EVENT DATE: 20171114
